FAERS Safety Report 6004603-2 (Version None)
Quarter: 2008Q4

REPORT INFORMATION
  Report Type: 
  Country: None (occurrence: None)
  Receive Date: 20081216
  Receipt Date: 20080422
  Transmission Date: 20090506
  Serious: No
  Sender: FDA-Public Use
  Company Number: US-BRISTOL-MYERS SQUIBB COMPANY-14160212

PATIENT
  Age: 84 Year
  Sex: Male
  Weight: 63 kg

DRUGS (3)
  1. PRAVACHOL [Suspect]
     Dosage: DOSE VALUE 30 OR 40 MG.
     Dates: start: 20050101, end: 20070101
  2. LISINOPRIL [Concomitant]
     Dates: start: 20050101
  3. NEXIUM [Concomitant]

REACTIONS (1)
  - PAIN [None]
